FAERS Safety Report 4693920-4 (Version None)
Quarter: 2005Q2

REPORT INFORMATION
  Report Type: 
  Country: None (occurrence: None)
  Receive Date: 20050616
  Receipt Date: 20050603
  Transmission Date: 20051028
  Serious: Yes (Hospitalization)
  Sender: FDA-Public Use
  Company Number: HQWYE265206JUN05

PATIENT
  Age: 32 Year
  Sex: Female

DRUGS (1)
  1. EFFEXOR XR [Suspect]
     Indication: DEPRESSION
     Dosage: 150 MG 1X PER 1 DAY, ORAL
     Route: 048
     Dates: start: 20040913, end: 20050520

REACTIONS (4)
  - HYPERCOAGULATION [None]
  - HYPERTENSION [None]
  - RETINAL ARTERY OCCLUSION [None]
  - RETINAL EXUDATES [None]
